FAERS Safety Report 9452930 (Version 4)
Quarter: 2014Q3

REPORT INFORMATION
  Report Type: Report from Study
  Country: TR (occurrence: TR)
  Receive Date: 20130812
  Receipt Date: 20140709
  Transmission Date: 20150326
  Serious: Yes (Death, Other)
  Sender: FDA-Public Use
  Company Number: TR-ROCHE-1260178

PATIENT
  Age: 11 Day
  Sex: Male

DRUGS (4)
  1. ALTEPLASE [Suspect]
     Active Substance: ALTEPLASE
     Dosage: 1 MG/KG TWICE
     Route: 065
  2. ENOXAPARIN [Suspect]
     Active Substance: ENOXAPARIN
     Indication: AORTIC THROMBOSIS
     Dosage: 50 HOURS
     Route: 065
  3. ALTEPLASE [Suspect]
     Active Substance: ALTEPLASE
     Indication: AORTIC THROMBOSIS
     Dosage: 0.5MG/KG/HOUR
     Route: 065
  4. ENOXAPARIN [Suspect]
     Active Substance: ENOXAPARIN
     Dosage: 5 DAYS
     Route: 065

REACTIONS (3)
  - Sepsis [Fatal]
  - Blood fibrinogen decreased [Recovered/Resolved]
  - Drug ineffective [Unknown]
